FAERS Safety Report 7629970-5 (Version None)
Quarter: 2011Q3

REPORT INFORMATION
  Report Type: 
  Country: None (occurrence: None)
  Receive Date: 20110715
  Receipt Date: 20110701
  Transmission Date: 20111222
  Serious: Yes (Hospitalization)
  Sender: FDA-Public Use
  Company Number: KR-JNJFOC-20110700447

PATIENT
  Age: 65 Year
  Sex: Male

DRUGS (1)
  1. DACOGEN [Suspect]
     Indication: PRODUCT USED FOR UNKNOWN INDICATION
     Dosage: CYCLE 1 (5-DAY DOSING) INTRAVENOUS
     Route: 042
     Dates: start: 20110501

REACTIONS (8)
  - DRUG ADMINISTRATION ERROR [None]
  - FEELING ABNORMAL [None]
  - WHITE BLOOD CELL COUNT DECREASED [None]
  - INCORRECT DRUG ADMINISTRATION DURATION [None]
  - INFLAMMATION [None]
  - INCORRECT DOSE ADMINISTERED [None]
  - PLATELET COUNT DECREASED [None]
  - EXTRAVASATION [None]
